FAERS Safety Report 7787020-4 (Version None)
Quarter: 2011Q3

REPORT INFORMATION
  Report Type: 
  Country: None (occurrence: None)
  Receive Date: 20110929
  Receipt Date: 20110927
  Transmission Date: 20111222
  Serious: Yes (Hospitalization)
  Sender: FDA-Public Use
  Company Number: FR-EISAI INC-E2090-01757-SPO-FR

PATIENT
  Sex: Male

DRUGS (1)
  1. ZONEGRAN [Suspect]
     Dosage: UNKNOWN
     Route: 048

REACTIONS (1)
  - URINARY TRACT INFECTION [None]
